FAERS Safety Report 9748448 (Version 2)
Quarter: 2014Q1

REPORT INFORMATION
  Report Type: Spontaneous
  Country: US (occurrence: None)
  Receive Date: 20131209
  Receipt Date: 20140211
  Transmission Date: 20141002
  Serious: Yes (Hospitalization, Other)
  Sender: FDA-Public Use
  Company Number: SYM-2013-13716

PATIENT
  Sex: Female

DRUGS (1)
  1. XENAZINE [Suspect]
     Indication: DYSTONIA
     Dosage: 25MG AM, 12.5MG NOON, 12.5MG PM, TUBE
     Dates: start: 201312

REACTIONS (5)
  - Speech disorder [None]
  - Screaming [None]
  - Muscle rigidity [None]
  - Arthralgia [None]
  - Dystonia [None]
